FAERS Safety Report 7347067-9 (Version None)
Quarter: 2011Q1

REPORT INFORMATION
  Report Type: 
  Country: None (occurrence: None)
  Receive Date: 20110303
  Receipt Date: 20110216
  Transmission Date: 20110831
  Serious: Yes (Other)
  Sender: FDA-Public Use
  Company Number: 018327

PATIENT
  Sex: Male

DRUGS (4)
  1. ZOFRAB [Concomitant]
  2. PRENATAL VITAMINS [Concomitant]
  3. KEPPRA [Suspect]
     Indication: EPILEPSY
     Dosage: (500 MG BID, PRIOR TO CONCEPTION TRANSPLACENTAL)
     Route: 064
  4. FOLIC ACID [Concomitant]

REACTIONS (2)
  - CALCINOSIS [None]
  - VOMITING IN PREGNANCY [None]
